FAERS Safety Report 5162222-4 (Version None)
Quarter: 2006Q4

REPORT INFORMATION
  Report Type: 
  Country: None (occurrence: None)
  Receive Date: 20061121
  Receipt Date: 20061110
  Transmission Date: 20070319
  Serious: Yes (Death)
  Sender: FDA-Public Use
  Company Number: 2006BH014599

PATIENT
  Age: 36 Year

DRUGS (2)
  1. HEPARIN SODIUM [Suspect]
     Indication: DRUG USE FOR UNKNOWN INDICATION
     Dosage: ;UNK;UNK
  2. OXYCODONE HCL [Suspect]
     Indication: DRUG USE FOR UNKNOWN INDICATION
     Dosage: ;UNK;PARN
     Route: 051

REACTIONS (2)
  - CARDIO-RESPIRATORY ARREST [None]
  - DRUG ABUSER [None]
